FAERS Safety Report 9850324 (Version 1)
Quarter: 2013Q4

REPORT INFORMATION
  Report Type: Spontaneous
  Country: US (occurrence: None)
  Receive Date: 20131127
  Receipt Date: 20131127
  Transmission Date: 20140711
  Serious: Yes (Other)
  Sender: FDA-Public Use
  Company Number: 224315LEO

PATIENT
  Sex: Male

DRUGS (1)
  1. PICATO (INGENOL MEBUTATE) (0.015 %) [Suspect]
     Indication: ACTINIC KERATOSIS
     Dosage: DAILY X 3 DAYS
     Route: 061
     Dates: start: 20131013, end: 20131015

REACTIONS (4)
  - Application site erythema [None]
  - Application site swelling [None]
  - Application site scab [None]
  - Drug administered at inappropriate site [None]
